FAERS Safety Report 18261304 (Version 1)
Quarter: 2020Q3

REPORT INFORMATION
  Report Type: Spontaneous
  Country: GR (occurrence: GR)
  Receive Date: 20200914
  Receipt Date: 20200914
  Transmission Date: 20201103
  Serious: Yes (Hospitalization)
  Sender: FDA-Public Use
  Company Number: GR-ELI_LILLY_AND_COMPANY-GR202009001968

PATIENT
  Age: 69 Year
  Sex: Male

DRUGS (1)
  1. HUMULIN M3 30/70 [Suspect]
     Active Substance: INSULIN HUMAN
     Indication: DIABETES MELLITUS
     Dosage: 50 INTERNATIONAL UNIT, DAILY
     Route: 065
     Dates: start: 2000

REACTIONS (2)
  - Pneumonia [Unknown]
  - Lung neoplasm malignant [Unknown]

NARRATIVE: CASE EVENT DATE: 2019
